FAERS Safety Report 4503835-X (Version None)
Quarter: 2004Q4

REPORT INFORMATION
  Report Type: 
  Country: None (occurrence: None)
  Receive Date: 20041115
  Receipt Date: 20041102
  Transmission Date: 20050328
  Serious: Yes (Hospitalization, Other)
  Sender: FDA-Public Use
  Company Number: 2004056929

PATIENT
  Age: 61 Year
  Sex: Female
  Weight: 75 kg

DRUGS (19)
  1. NORVASC [Suspect]
     Indication: ILL-DEFINED DISORDER
     Dosage: 5 MG (1 IN 1 D), ORAL
     Route: 048
     Dates: start: 20040727, end: 20040809
  2. VALPROATE SODIUM [Suspect]
     Dosage: 800 MG (400 MG, 2 IN  1 D ), ORAL
     Route: 048
     Dates: start: 20040727, end: 20040809
  3. CANDESARTAN CILEXETIL (CANDESARTAN CILEXETIL) [Suspect]
     Indication: ILL-DEFINED DISORDER
     Dosage: 8 MG (8 MG, 1 IN 1 D), ORAL
     Route: 048
     Dates: start: 20040727, end: 20040809
  4. IMIDAPRIL (IMIDAPRIL) [Suspect]
     Indication: ILL-DEFINED DISORDER
     Dosage: 5 MG (5 MG, 1 IN 1 D), ORAL
     Route: 048
     Dates: start: 20040727, end: 20040809
  5. ASPIRIN [Suspect]
     Indication: ILL-DEFINED DISORDER
     Dosage: 100 MG (100 MG, 1 IN 1 D), ORAL
     Route: 048
     Dates: start: 20040803, end: 20040809
  6. 07242004 [Suspect]
     Dosage: 1 GRAM (0.5 GRA, 2 IN 1 D), INTRAVENOUS
     Route: 042
     Dates: start: 20040724, end: 20040729
  7. ZOPICLONE (ZOPICLONE) [Concomitant]
  8. ETIZOLAM (ETIZOLAM) [Concomitant]
  9. ARGATROBAN (ARGATROBAN) [Concomitant]
  10. EDARAVONE (EDARAVONE) [Concomitant]
  11. NICARDIPINE HCL [Concomitant]
  12. AMINOFLUID (AMINO ACIDS NOS, ELECTROLYTES NOS, GLUCOSE) [Concomitant]
  13. RINGER-LACTATE SOLUTION ^FRESENIUS^ (CALCIUM CHLORIDE DIHYDRATE, POTAS [Concomitant]
  14. ROXATIDINE ACETATE HYDROCHLORIDE (ROXATIDINE ACETATE HYDRCHLORIDE) [Concomitant]
  15. THIAMINE HCL [Concomitant]
  16. PYRIDOXAL PHOSPHATE (PYRIDOXAL PHOSPHATE) [Concomitant]
  17. CYANOCOBALAMIN (CYANOCOBALAMIN) [Concomitant]
  18. OSMOSAL (GLUCOSE, POTASSIUM CHLORIDE, SODIUM CHLORIDE, SODIUM LACTATE) [Concomitant]
  19. LOW MOLECULAR DEXTRAN L (CALCIUM CHLORIDE DIHYDRATE, DEXTRAN 40, POTAS [Concomitant]

REACTIONS (9)
  - ALANINE AMINOTRANSFERASE INCREASED [None]
  - ASPARTATE AMINOTRANSFERASE INCREASED [None]
  - BLOOD LACTATE DEHYDROGENASE INCREASED [None]
  - CEREBRAL ARTERY OCCLUSION [None]
  - CEREBRAL INFARCTION [None]
  - INFECTION [None]
  - INTRACRANIAL ANEURYSM [None]
  - STEVENS-JOHNSON SYNDROME [None]
  - TOXIC EPIDERMAL NECROLYSIS [None]
